FAERS Safety Report 18409727 (Version 1)
Quarter: 2020Q4

REPORT INFORMATION
  Report Type: Spontaneous
  Country: US (occurrence: US)
  Receive Date: 20201021
  Receipt Date: 20201021
  Transmission Date: 20210114
  Serious: Yes (Life-Threatening, Hospitalization)
  Sender: FDA-Public Use
  Company Number: US-ELI_LILLY_AND_COMPANY-US90111147A

PATIENT
  Age: 14 Year
  Sex: Female

DRUGS (2)
  1. PROZAC [Suspect]
     Active Substance: FLUOXETINE HYDROCHLORIDE
     Dosage: 40 MG, DAILY
     Route: 048
  2. PROZAC [Suspect]
     Active Substance: FLUOXETINE HYDROCHLORIDE
     Indication: OBSESSIVE-COMPULSIVE DISORDER
     Dosage: 20 MG, DAILY
     Route: 048

REACTIONS (14)
  - Hostility [Unknown]
  - Scratch [Unknown]
  - Self-induced vomiting [Unknown]
  - Abnormal behaviour [Unknown]
  - Decreased appetite [Unknown]
  - Ecchymosis [Unknown]
  - Confusional state [Unknown]
  - Suicidal ideation [Unknown]
  - Social avoidant behaviour [Unknown]
  - Anticholinergic syndrome [Unknown]
  - Dehydration [Unknown]
  - Intentional self-injury [Unknown]
  - Depression [Unknown]
  - Dystonia [Unknown]
